FAERS Safety Report 8881266 (Version 4)
Quarter: 2013Q2

REPORT INFORMATION
  Report Type: Spontaneous
  Country: US (occurrence: US)
  Receive Date: 20121031
  Receipt Date: 20130522
  Transmission Date: 20140414
  Serious: Yes (Other)
  Sender: FDA-Public Use
  Company Number: US-ELI_LILLY_AND_COMPANY-US201210005936

PATIENT
  Age: 57 Year
  Sex: Female
  Weight: 90.25 kg

DRUGS (2)
  1. FORTEO [Suspect]
     Indication: OSTEOPOROSIS
     Dosage: 20 UG, QD
     Route: 058
     Dates: start: 2011
  2. FORTEO [Suspect]
     Dosage: 20 UG, QD
     Route: 058
     Dates: end: 20120917

REACTIONS (4)
  - Squamous cell carcinoma of the tongue [Recovered/Resolved]
  - Bone lesion [Unknown]
  - Bone pain [Unknown]
  - Pain in extremity [Recovered/Resolved]
